FAERS Safety Report 15960976 (Version 1)
Quarter: 2019Q1

REPORT INFORMATION
  Report Type: Spontaneous
  Country: US (occurrence: US)
  Receive Date: 20190214
  Receipt Date: 20190214
  Transmission Date: 20190417
  Serious: No
  Sender: FDA-Public Use
  Company Number: None

PATIENT
  Age: 20 Year
  Sex: Female
  Weight: 66.6 kg

DRUGS (19)
  1. DRYSOL [Concomitant]
     Active Substance: ALUMINUM CHLORIDE
  2. HYDROCODONE/ACETAMINOPHEN [Concomitant]
     Active Substance: ACETAMINOPHEN\HYDROCODONE
  3. SUMATRIPTAN. [Concomitant]
     Active Substance: SUMATRIPTAN
  4. AIMOVIG [Concomitant]
     Active Substance: ERENUMAB-AOOE
  5. PRAZOSIN. [Concomitant]
     Active Substance: PRAZOSIN
  6. GABAPENTIN. [Concomitant]
     Active Substance: GABAPENTIN
  7. COQ10 [Concomitant]
     Active Substance: UBIDECARENONE
  8. FLUOXETINE [Concomitant]
     Active Substance: FLUOXETINE HYDROCHLORIDE
  9. ONDANSETRON [Concomitant]
     Active Substance: ONDANSETRON
  10. AIMOVIG [Suspect]
     Active Substance: ERENUMAB-AOOE
     Indication: MIGRAINE
     Dosage: ?          QUANTITY:2 INJECTION(S);OTHER FREQUENCY:EVERY 28 DAYS;?
     Route: 058
  11. CLONAZEPAM. [Concomitant]
     Active Substance: CLONAZEPAM
  12. METHYLPHENIDATE. [Concomitant]
     Active Substance: METHYLPHENIDATE
  13. MONTELUKAST [Concomitant]
     Active Substance: MONTELUKAST SODIUM
  14. VITAMIN D3 [Concomitant]
     Active Substance: CHOLECALCIFEROL
  15. FISH OIL [Concomitant]
     Active Substance: FISH OIL
  16. MAGNESIUM [Concomitant]
     Active Substance: MAGNESIUM
  17. GLUCOSAMINE [Concomitant]
     Active Substance: GLUCOSAMINE
  18. VITAMIN C [Concomitant]
     Active Substance: ASCORBIC ACID
  19. MSM [Concomitant]
     Active Substance: DIMETHYL SULFONE

REACTIONS (3)
  - Pyrexia [None]
  - Fibromyalgia [None]
  - Nasopharyngitis [None]
